FAERS Safety Report 7747118-3 (Version None)
Quarter: 2011Q3

REPORT INFORMATION
  Report Type: 
  Country: None (occurrence: None)
  Receive Date: 20110913
  Receipt Date: 20110907
  Transmission Date: 20111222
  Serious: Yes (Other)
  Sender: FDA-Public Use
  Company Number: US-PFIZER INC-2011126037

PATIENT
  Sex: Male

DRUGS (3)
  1. LANTUS [Concomitant]
     Indication: DIABETES MELLITUS
  2. SUTENT [Suspect]
     Indication: METASTATIC RENAL CELL CARCINOMA
     Dosage: 50 MG DAILY X 28 DAYS Q 42 DAYS
     Route: 048
     Dates: start: 20110323
  3. HUMALOG [Concomitant]
     Indication: DIABETES MELLITUS

REACTIONS (2)
  - PALMAR-PLANTAR ERYTHRODYSAESTHESIA SYNDROME [None]
  - DIVERTICULITIS [None]
